FAERS Safety Report 22187916 (Version 2)
Quarter: 2023Q2

REPORT INFORMATION
  Report Type: Report from Study
  Country: EG (occurrence: EG)
  Receive Date: 20230408
  Receipt Date: 20230414
  Transmission Date: 20230722
  Serious: Yes (Other)
  Sender: FDA-Public Use
  Company Number: EG-002147023-NVSC2023EG078513

PATIENT
  Age: 10 Year
  Sex: Female

DRUGS (4)
  1. OMNITROPE [Suspect]
     Active Substance: SOMATROPIN
     Indication: Growth hormone deficiency
     Dosage: UNK, 14 DASHES AS PER THE REPORTER [ BY INSULIN SYRINGE 100 DASHES ] (0.8 MG/DAY) BUT NOW [ 0.8 MG/D
     Route: 058
     Dates: start: 202302
  2. OMEGA 3 [Concomitant]
     Active Substance: CAPSAICIN
     Indication: Nutritional supplementation
     Dosage: 1 DOSAGE FORM, QD (STARTED SINCE 40 DAYS - STOPPED SINCE THE BEGINNING OF RAMADAN)
     Route: 065
  3. ENSURE [Concomitant]
     Active Substance: AMINO ACIDS\DEXTROSE\ELECTROLYTES NOS\SOYBEAN OIL\VITAMINS
     Indication: Nutritional supplementation
     Dosage: UNK, QD,  2 SPOONFUL ON CUP OF WATERSINCE 40 DAYS - STOPPED SINCE THE BEGINNING OF RAMADAN
     Route: 065
  4. ZINC [Concomitant]
     Active Substance: ZINC
     Indication: Nutritional supplementation
     Dosage: 1 DOSAGE FORM, QD, SINCE 8 DAYS AGO - ONGOING
     Route: 065

REACTIONS (8)
  - Fear of injection [Not Recovered/Not Resolved]
  - Mental disorder [Not Recovered/Not Resolved]
  - Injection site swelling [Recovered/Resolved]
  - Injection site pain [Recovered/Resolved]
  - Product availability issue [Not Recovered/Not Resolved]
  - Drug administered in wrong device [Not Recovered/Not Resolved]
  - Circumstance or information capable of leading to medication error [Not Recovered/Not Resolved]
  - Device use issue [Unknown]

NARRATIVE: CASE EVENT DATE: 20230201
